FAERS Safety Report 10678890 (Version 1)
Quarter: 2014Q4

REPORT INFORMATION
  Report Type: Spontaneous
  Country: US (occurrence: None)
  Receive Date: 20141224
  Receipt Date: 20141224
  Transmission Date: 20150529
  Serious: Yes (Hospitalization)
  Sender: FDA-Public Use
  Company Number: None

PATIENT
  Age: 62 Year
  Sex: Female
  Weight: 87.7 kg

DRUGS (2)
  1. SIMEPRAVIR [Suspect]
     Active Substance: SIMEPREVIR
     Indication: CHRONIC HEPATITIS C
     Route: 048
     Dates: start: 20140418, end: 20140711
  2. SOFOSBUVIR [Suspect]
     Active Substance: SOFOSBUVIR
     Indication: CHRONIC HEPATITIS C
     Route: 048
     Dates: start: 20140418, end: 20140711

REACTIONS (8)
  - Crepitations [None]
  - Brain natriuretic peptide increased [None]
  - Dyspnoea [None]
  - Infection [None]
  - Cough [None]
  - Fluid overload [None]
  - Respiratory rate increased [None]
  - Vomiting [None]

NARRATIVE: CASE EVENT DATE: 20140701
